FAERS Safety Report 4767195-1 (Version None)
Quarter: 2005Q3

REPORT INFORMATION
  Report Type: 
  Country: None (occurrence: None)
  Receive Date: 20050909
  Receipt Date: 20050825
  Transmission Date: 20060218
  Serious: Yes (Disabling)
  Sender: FDA-Public Use
  Company Number: COT_0119_2005

PATIENT
  Age: 69 Year
  Sex: Female
  Weight: 38.5557 kg

DRUGS (8)
  1. VENTAVIS [Suspect]
     Indication: PULMONARY HYPERTENSION
     Dosage: 5 MCG 6XD IH
     Route: 055
     Dates: start: 20050627
  2. VENTAVIS [Suspect]
     Indication: PULMONARY HYPERTENSION
     Dosage: 5 MCG 6XD IH
     Route: 055
     Dates: start: 20050627
  3. VENTAVIS [Suspect]
     Indication: PULMONARY HYPERTENSION
     Dosage: 5 MCG 6XD IH
     Route: 055
     Dates: start: 20050627
  4. TRACLEER [Concomitant]
  5. TYLENOL [Concomitant]
  6. COUMADIN [Concomitant]
  7. LASIX [Concomitant]
  8. PRILOSEC [Concomitant]

REACTIONS (8)
  - CHEST DISCOMFORT [None]
  - COUGH [None]
  - FLUSHING [None]
  - HEADACHE [None]
  - NAUSEA [None]
  - PAIN IN JAW [None]
  - PHOTOPSIA [None]
  - VISUAL ACUITY REDUCED [None]
